FAERS Safety Report 5403280-9 (Version None)
Quarter: 2007Q3

REPORT INFORMATION
  Report Type: 
  Country: None (occurrence: None)
  Receive Date: 20070730
  Receipt Date: 20070712
  Transmission Date: 20080115
  Serious: Yes (Other)
  Sender: FDA-Public Use
  Company Number: 230001M07PRI

PATIENT
  Sex: Female

DRUGS (1)
  1. REBIF [Suspect]
     Indication: MULTIPLE SCLEROSIS
     Dosage: 22 MCG
     Dates: start: 20060803

REACTIONS (14)
  - ABDOMINAL PAIN [None]
  - DEPRESSION [None]
  - DIZZINESS [None]
  - DRUG ADMINISTRATION ERROR [None]
  - EMOTIONAL DISORDER [None]
  - FATIGUE [None]
  - FULL BLOOD COUNT ABNORMAL [None]
  - HEADACHE [None]
  - HEPATIC ENZYME ABNORMAL [None]
  - INCORRECT DOSE ADMINISTERED [None]
  - INFLUENZA LIKE ILLNESS [None]
  - INJECTION SITE REACTION [None]
  - MYALGIA [None]
  - OVERDOSE [None]
